FAERS Safety Report 6833435-8 (Version None)
Quarter: 2010Q3

REPORT INFORMATION
  Report Type: 
  Country: None (occurrence: None)
  Receive Date: 20100712
  Receipt Date: 20070502
  Transmission Date: 20110219
  Serious: No
  Sender: FDA-Public Use
  Company Number: US-PFIZER INC-2007022887

PATIENT
  Sex: Female
  Weight: 78.02 kg

DRUGS (1)
  1. CHANTIX [Suspect]
     Indication: SMOKING CESSATION THERAPY
     Route: 048
     Dates: start: 20070312, end: 20070316

REACTIONS (2)
  - HEADACHE [None]
  - NASOPHARYNGITIS [None]
